FAERS Safety Report 6035683-6 (Version None)
Quarter: 2009Q1

REPORT INFORMATION
  Report Type: 
  Country: None (occurrence: None)
  Receive Date: 20090113
  Receipt Date: 20090108
  Transmission Date: 20090719
  Serious: Yes (Hospitalization)
  Sender: FDA-Public Use
  Company Number: US-BIOGENIDEC-2008BI014717

PATIENT
  Age: 55 Year
  Sex: Male

DRUGS (1)
  1. AVONEX [Suspect]
     Indication: MULTIPLE SCLEROSIS
     Route: 030
     Dates: start: 20070901

REACTIONS (7)
  - GASTRIC ULCER [None]
  - GASTROINTESTINAL DISORDER POSTOPERATIVE [None]
  - INTESTINAL HAEMORRHAGE [None]
  - MULTIPLE SCLEROSIS RELAPSE [None]
  - STRESS [None]
  - SUTURE RUPTURE [None]
  - THROMBOSIS [None]
